FAERS Safety Report 8180188-X (Version None)
Quarter: 2012Q1

REPORT INFORMATION
  Report Type: 
  Country: None (occurrence: None)
  Receive Date: 20120302
  Receipt Date: 20120224
  Transmission Date: 20120608
  Serious: Yes (Other)
  Sender: FDA-Public Use
  Company Number: US-BAYER-2012-017119

PATIENT
  Age: 24 Year
  Sex: Female
  Weight: 114.29 kg

DRUGS (6)
  1. PHENAZOPYRIDINE HCL TAB [Concomitant]
  2. SEPTRA [Concomitant]
  3. LEVAQUIN [Concomitant]
  4. MOTRIN [Concomitant]
  5. YASMIN [Suspect]
     Dosage: UNK
     Dates: start: 20061001
  6. PERCOCET [Concomitant]

REACTIONS (2)
  - DEEP VEIN THROMBOSIS [None]
  - CEREBROVASCULAR ACCIDENT [None]
